FAERS Safety Report 4698497-5 (Version None)
Quarter: 2005Q2

REPORT INFORMATION
  Report Type: 
  Country: None (occurrence: None)
  Receive Date: 20050622
  Receipt Date: 20050609
  Transmission Date: 20051028
  Serious: Yes (Hospitalization, Other)
  Sender: FDA-Public Use
  Company Number: 2005088483

PATIENT
  Age: 18 Year
  Sex: Male

DRUGS (1)
  1. BEXTRA [Suspect]
     Indication: SHOULDER PAIN
     Dates: start: 20050218

REACTIONS (5)
  - ASTHENIA [None]
  - BLOOD PRESSURE INCREASED [None]
  - EPISTAXIS [None]
  - MALAISE [None]
  - PERIORBITAL HAEMATOMA [None]
